FAERS Safety Report 14695524 (Version 1)
Quarter: 2018Q1

REPORT INFORMATION
  Report Type: Spontaneous
  Country: US (occurrence: US)
  Receive Date: 20180327
  Receipt Date: 20180327
  Transmission Date: 20180509
  Serious: No
  Sender: FDA-Public Use
  Company Number: None

PATIENT
  Age: 31 Year
  Sex: Female

DRUGS (10)
  1. ATORVASTATIN [Concomitant]
     Active Substance: ATORVASTATIN
  2. ONDANSETRON [Concomitant]
     Active Substance: ONDANSETRON
  3. INSULIN GLARGINE [Suspect]
     Active Substance: INSULIN GLARGINE
     Indication: HYPERGLYCAEMIA
     Dosage: DOSE - 24 UNITS GLARGINE
     Route: 058
     Dates: start: 20160101
  4. HYDROXYZINE [Concomitant]
     Active Substance: HYDROXYZINE HYDROCHLORIDE
  5. INSULIN ASPART [Suspect]
     Active Substance: INSULIN ASPART
     Dosage: DOSE - 12 UNITS ASPART
     Route: 058
  6. DEXTROSE. [Concomitant]
     Active Substance: DEXTROSE
  7. HYDRALAZINE [Concomitant]
     Active Substance: HYDRALAZINE HYDROCHLORIDE
  8. HEPARIN [Concomitant]
     Active Substance: HEPARIN SODIUM
  9. HYDROMORPHONE [Concomitant]
     Active Substance: HYDROMORPHONE
  10. CARVEDILOL. [Concomitant]
     Active Substance: CARVEDILOL

REACTIONS (8)
  - Tachycardia [None]
  - Vomiting [None]
  - Blood glucose increased [None]
  - Hypoglycaemia [None]
  - Abdominal pain [None]
  - Hypertensive emergency [None]
  - Nausea [None]
  - Hypoxia [None]

NARRATIVE: CASE EVENT DATE: 20180104
